FAERS Safety Report 18600389 (Version 1)
Quarter: 2020Q4

REPORT INFORMATION
  Report Type: Spontaneous
  Country: FR (occurrence: FR)
  Receive Date: 20201210
  Receipt Date: 20201210
  Transmission Date: 20210114
  Serious: Yes (Hospitalization, Other)
  Sender: FDA-Public Use
  Company Number: FR-PFIZER INC-2020484240

PATIENT
  Age: 21 Year
  Sex: Male

DRUGS (2)
  1. LYRICA [Suspect]
     Active Substance: PREGABALIN
     Dosage: 1 DF, AS NEEDED
     Dates: start: 202003
  2. RIVOTRIL [Suspect]
     Active Substance: CLONAZEPAM
     Dosage: 1 DF, AS NEEDED
     Dates: start: 202003

REACTIONS (2)
  - Drug abuse [Unknown]
  - Fall [Recovered/Resolved]

NARRATIVE: CASE EVENT DATE: 2020
